FAERS Safety Report 18510531 (Version 1)
Quarter: 2020Q4

REPORT INFORMATION
  Report Type: Spontaneous
  Country: US (occurrence: US)
  Receive Date: 20201116
  Receipt Date: 20201116
  Transmission Date: 20210114
  Serious: Yes (Hospitalization)
  Sender: FDA-Public Use
  Company Number: None

PATIENT
  Sex: Male

DRUGS (8)
  1. RYDAPT [Suspect]
     Active Substance: MIDOSTAURIN
     Indication: ACUTE MYELOID LEUKAEMIA
     Dosage: ?          OTHER FREQUENCY:BID W/ MEALS;?
     Route: 048
     Dates: start: 20200820
  2. URSODIOL. [Concomitant]
     Active Substance: URSODIOL
     Dates: start: 20200528
  3. MESALAMINE. [Concomitant]
     Active Substance: MESALAMINE
     Dates: start: 20200603
  4. ACYCLOVIR. [Concomitant]
     Active Substance: ACYCLOVIR
     Dates: start: 20201013
  5. ELIQUIS [Concomitant]
     Active Substance: APIXABAN
     Dates: start: 20201013
  6. FOLIC ACID. [Concomitant]
     Active Substance: FOLIC ACID
     Dates: start: 20200926
  7. LEVOTHYROXINE. [Concomitant]
     Active Substance: LEVOTHYROXINE
     Dates: start: 20200625
  8. METFORMIN [Concomitant]
     Active Substance: METFORMIN HYDROCHLORIDE
     Dates: start: 20200908

REACTIONS (2)
  - White blood cell count decreased [None]
  - Therapy interrupted [None]
